FAERS Safety Report 15609053 (Version 1)
Quarter: 2018Q4

REPORT INFORMATION
  Report Type: Report from Study
  Country: US (occurrence: US)
  Receive Date: 20181112
  Receipt Date: 20181112
  Transmission Date: 20190205
  Serious: Yes (Other)
  Sender: FDA-Public Use
  Company Number: US-GILEAD-2018-0373345

PATIENT
  Age: 56 Year
  Sex: Female

DRUGS (8)
  1. ADCIRCA [Concomitant]
     Active Substance: TADALAFIL
     Dates: start: 20181024
  2. PRILOSEC [OMEPRAZOLE] [Concomitant]
     Dates: start: 20170518
  3. ALDACTONE [Concomitant]
     Active Substance: SPIRONOLACTONE
     Dates: start: 20160427
  4. SYNTHROID [Concomitant]
     Active Substance: LEVOTHYROXINE SODIUM
     Dosage: 50 UG
     Dates: start: 20160427
  5. FUROSEMIDE. [Concomitant]
     Active Substance: FUROSEMIDE
     Dosage: 10 MG
     Dates: start: 20160427
  6. CONSTULOSE [Concomitant]
     Active Substance: LACTULOSE
     Dosage: 10 G
     Dates: start: 20180324
  7. AMBRISENTAN [Suspect]
     Active Substance: AMBRISENTAN
     Indication: PULMONARY ARTERIAL HYPERTENSION
     Dosage: 10 MG, QD
     Route: 065
     Dates: start: 20151024
  8. PROPRANOLOL [Concomitant]
     Active Substance: PROPRANOLOL HYDROCHLORIDE
     Dosage: 10 MG
     Dates: start: 20170313

REACTIONS (2)
  - Rib fracture [Not Recovered/Not Resolved]
  - Product dose omission [Not Recovered/Not Resolved]
